FAERS Safety Report 7477875-5 (Version None)
Quarter: 2011Q2

REPORT INFORMATION
  Report Type: 
  Country: None (occurrence: None)
  Receive Date: 20110513
  Receipt Date: 20101230
  Transmission Date: 20111010
  Serious: Yes (Hospitalization, Other)
  Sender: FDA-Public Use
  Company Number: US-BAYER-201031470NA

PATIENT
  Age: 35 Year
  Sex: Female
  Weight: 72.109 kg

DRUGS (5)
  1. TYLENOL REGULAR [Concomitant]
     Indication: PAIN
  2. ROBAXIN [Concomitant]
  3. YAZ [Suspect]
     Indication: CONTRACEPTION
     Route: 048
     Dates: start: 20070101, end: 20090615
  4. FLEXERIL [Concomitant]
  5. UNISOM [Concomitant]
     Indication: INSOMNIA

REACTIONS (6)
  - CHOLELITHIASIS [None]
  - BILIARY COLIC [None]
  - CHOLECYSTITIS [None]
  - MENTAL DISORDER [None]
  - GALLBLADDER INJURY [None]
  - CHOLECYSTITIS CHRONIC [None]
